FAERS Safety Report 12442796 (Version 1)
Quarter: 2016Q2

REPORT INFORMATION
  Report Type: Report from Study
  Country: BR (occurrence: BR)
  Receive Date: 20160607
  Receipt Date: 20160607
  Transmission Date: 20160815
  Serious: Yes (Other)
  Sender: FDA-Public Use
  Company Number: BR-JNJFOC-20160601033

PATIENT
  Age: 22 Year
  Sex: Male

DRUGS (4)
  1. REMICADE [Suspect]
     Active Substance: INFLIXIMAB
     Indication: CROHN^S DISEASE
     Route: 042
     Dates: start: 201602
  2. AZATHIOPRINE. [Concomitant]
     Active Substance: AZATHIOPRINE
     Route: 065
  3. REMICADE [Suspect]
     Active Substance: INFLIXIMAB
     Indication: CROHN^S DISEASE
     Route: 042
     Dates: start: 201410
  4. REMICADE [Suspect]
     Active Substance: INFLIXIMAB
     Indication: CROHN^S DISEASE
     Route: 042
     Dates: start: 201601

REACTIONS (9)
  - Off label use [Unknown]
  - Diarrhoea [Unknown]
  - Infusion related reaction [Unknown]
  - Dyspnoea [Unknown]
  - Tachycardia [Unknown]
  - Product use issue [Unknown]
  - Drug ineffective [Unknown]
  - Haematochezia [Not Recovered/Not Resolved]
  - Fatigue [Unknown]

NARRATIVE: CASE EVENT DATE: 201410
